FAERS Safety Report 6078367-0 (Version None)
Quarter: 2009Q1

REPORT INFORMATION
  Report Type: 
  Country: None (occurrence: None)
  Receive Date: 20090213
  Receipt Date: 20090203
  Transmission Date: 20090719
  Serious: Yes (Other)
  Sender: FDA-Public Use
  Company Number: ES-GILEAD-2009-0020167

PATIENT
  Age: 44 Year
  Sex: Male

DRUGS (3)
  1. VIREAD [Suspect]
     Indication: HIV INFECTION
     Dates: start: 20050302, end: 20050629
  2. EFAVIRENZ [Concomitant]
     Indication: HIV INFECTION
     Dates: start: 20050302, end: 20050629
  3. LAMIVUDINE [Concomitant]
     Indication: HIV INFECTION
     Dates: start: 20050302, end: 20050629

REACTIONS (3)
  - ALANINE AMINOTRANSFERASE INCREASED [None]
  - ASPARTATE AMINOTRANSFERASE INCREASED [None]
  - NERVOUS SYSTEM DISORDER [None]
